FAERS Safety Report 5110481-6 (Version None)
Quarter: 2006Q3

REPORT INFORMATION
  Report Type: 
  Country: None (occurrence: None)
  Receive Date: 20060731
  Receipt Date: 20060614
  Transmission Date: 20061208
  Serious: No
  Sender: FDA-Public Use
  Company Number: 2006PV015606

PATIENT
  Age: 61 Year
  Sex: Female
  Weight: 71.6683 kg

DRUGS (4)
  1. BYETTA [Suspect]
     Indication: DIABETES MELLITUS NON-INSULIN-DEPENDENT
     Dosage: 5 MCG; BID; SC
     Route: 058
     Dates: start: 20060601
  2. GLYBURIDE/METFORMIN 5/500 [Concomitant]
  3. LANTUS [Concomitant]
  4. TRAMADOL HCL [Concomitant]

REACTIONS (10)
  - BACK INJURY [None]
  - BLOOD GLUCOSE INCREASED [None]
  - DIZZINESS [None]
  - DRUG INEFFECTIVE FOR UNAPPROVED INDICATION [None]
  - EXCORIATION [None]
  - FALL [None]
  - INJECTION SITE HAEMORRHAGE [None]
  - NAUSEA [None]
  - NECK INJURY [None]
  - WEIGHT DECREASED [None]
